FAERS Safety Report 10783603 (Version 1)
Quarter: 2015Q1

REPORT INFORMATION
  Report Type: Spontaneous
  Country: US (occurrence: US)
  Receive Date: 20150210
  Receipt Date: 20150210
  Transmission Date: 20150721
  Serious: Yes (Hospitalization, Other)
  Sender: FDA-Public Use
  Company Number: US-ACTAVIS-2015-02192

PATIENT
  Sex: Female

DRUGS (3)
  1. VANCOMYCIN HCL (WATSON LABORATORIES) [Suspect]
     Active Substance: VANCOMYCIN
     Indication: CLOSTRIDIUM DIFFICILE INFECTION
     Dosage: 1 CAPSULE TID FOR 10 DAYS
     Route: 048
     Dates: start: 2008, end: 2008
  2. BETASERON [Concomitant]
     Active Substance: INTERFERON BETA-1B
     Indication: MULTIPLE SCLEROSIS
     Dosage: 1 INJECTION DAILY
     Route: 030
     Dates: start: 2008
  3. TYLENOL [Concomitant]
     Active Substance: ACETAMINOPHEN
     Indication: PAIN
     Dosage: 1 TAB Q AFTER INJECTION
     Route: 048

REACTIONS (5)
  - Oxygen supplementation [Not Recovered/Not Resolved]
  - Dyspnoea exertional [Not Recovered/Not Resolved]
  - Cardiac septal defect [Unknown]
  - Pulmonary arterial pressure increased [Recovered/Resolved]
  - Vasoconstriction [Unknown]

NARRATIVE: CASE EVENT DATE: 2008
